FAERS Safety Report 18320046 (Version 1)
Quarter: 2020Q3

REPORT INFORMATION
  Report Type: Spontaneous
  Country: QA (occurrence: QA)
  Receive Date: 20200928
  Receipt Date: 20200928
  Transmission Date: 20201103
  Serious: Yes (Hospitalization)
  Sender: FDA-Public Use
  Company Number: QA-UPSHER-SMITH LABORATORIES, LLC-2020USL00510

PATIENT
  Age: 33 Year
  Sex: Male

DRUGS (3)
  1. TRENBOLONE ACETATE [Suspect]
     Active Substance: TRENBOLONE ACETATE
     Route: 065
  2. TADALAFIL. [Concomitant]
     Active Substance: TADALAFIL
     Dosage: 30 MG
     Route: 065
  3. TESTOSTERONE. [Suspect]
     Active Substance: TESTOSTERONE
     Dosage: UNK
     Route: 065

REACTIONS (1)
  - Delirium [Recovered/Resolved]
